FAERS Safety Report 5046181-0 (Version None)
Quarter: 2006Q2

REPORT INFORMATION
  Report Type: 
  Country: None (occurrence: None)
  Receive Date: 20060629
  Receipt Date: 20060622
  Transmission Date: 20061013
  Serious: Yes (Life-Threatening, Hospitalization)
  Sender: FDA-Public Use
  Company Number: 2006BH011333

PATIENT
  Age: 60 Year
  Sex: Female

DRUGS (1)
  1. EXTRANEAL [Suspect]
     Indication: RENAL FAILURE CHRONIC
     Dosage: 2.5 L; AT BEDTIME; IP
     Route: 033
     Dates: start: 20060314

REACTIONS (2)
  - DEVICE INTERACTION [None]
  - HYPOGLYCAEMIC COMA [None]
